FAERS Safety Report 12485790 (Version 1)
Quarter: 2016Q2

REPORT INFORMATION
  Report Type: Spontaneous
  Country: US (occurrence: US)
  Receive Date: 20160621
  Receipt Date: 20160621
  Transmission Date: 20160815
  Serious: No
  Sender: FDA-Public Use
  Company Number: US-BAYER-2016-112592

PATIENT
  Age: 56 Year
  Sex: Female

DRUGS (1)
  1. FINACEA [Suspect]
     Active Substance: AZELAIC ACID
     Indication: SKIN WRINKLING
     Dosage: UNK
     Route: 061

REACTIONS (3)
  - Product physical consistency issue [Unknown]
  - Off label use [Unknown]
  - Erythema of eyelid [Unknown]
